FAERS Safety Report 14591359 (Version 1)
Quarter: 2018Q1

REPORT INFORMATION
  Report Type: Spontaneous
  Country: US (occurrence: US)
  Receive Date: 20180301
  Receipt Date: 20180301
  Transmission Date: 20180509
  Serious: Yes (Hospitalization)
  Sender: FDA-Public Use
  Company Number: None

PATIENT
  Age: 16 Year
  Sex: Male
  Weight: 88.91 kg

DRUGS (1)
  1. LAMOTRIGINE 50MG [Suspect]
     Active Substance: LAMOTRIGINE
     Route: 048
     Dates: start: 20170116, end: 20180208

REACTIONS (2)
  - Seizure [None]
  - Product substitution issue [None]

NARRATIVE: CASE EVENT DATE: 20180123
